FAERS Safety Report 5363297-X (Version None)
Quarter: 2007Q2

REPORT INFORMATION
  Report Type: 
  Country: None (occurrence: None)
  Receive Date: 20070620
  Receipt Date: 20070614
  Transmission Date: 20071010
  Serious: Yes (Other)
  Sender: FDA-Public Use
  Company Number: US-ASTRAZENECA-2007UW14435

PATIENT
  Sex: Male
  Weight: 203.7 kg

DRUGS (6)
  1. SEROQUEL [Suspect]
     Indication: BIPOLAR DISORDER
     Route: 048
     Dates: start: 20040401
  2. SEROQUEL [Suspect]
     Indication: POST-TRAUMATIC STRESS DISORDER
     Route: 048
     Dates: start: 20040401
  3. SEROQUEL [Suspect]
     Indication: INTERMITTENT EXPLOSIVE DISORDER
     Route: 048
     Dates: start: 20040401
  4. SEROQUEL [Suspect]
     Route: 048
     Dates: end: 20070401
  5. SEROQUEL [Suspect]
     Route: 048
     Dates: end: 20070401
  6. SEROQUEL [Suspect]
     Route: 048
     Dates: end: 20070401

REACTIONS (6)
  - INCREASED APPETITE [None]
  - SEXUAL DYSFUNCTION [None]
  - SWELLING [None]
  - THIRST [None]
  - TREMOR [None]
  - WEIGHT INCREASED [None]
